FAERS Safety Report 9788546 (Version 3)
Quarter: 2014Q2

REPORT INFORMATION
  Report Type: Spontaneous
  Country: JP (occurrence: JP)
  Receive Date: 20131230
  Receipt Date: 20140619
  Transmission Date: 20141212
  Serious: Yes (Hospitalization, Other)
  Sender: FDA-Public Use
  Company Number: JP-BRISTOL-MYERS SQUIBB COMPANY-19816586

PATIENT
  Age: 98 Year
  Sex: Female

DRUGS (16)
  1. METGLUCO [Suspect]
     Indication: DIABETES MELLITUS
     Dosage: OCT13-DOSE INCREASED TO 1500MG
     Route: 048
     Dates: start: 201306, end: 20131018
  2. OLMETEC [Concomitant]
     Route: 048
     Dates: start: 20131018
  3. NESINA [Concomitant]
     Route: 048
  4. LASIX [Concomitant]
     Indication: CARDIAC FAILURE CONGESTIVE
     Route: 048
  5. ALDACTONE [Concomitant]
     Indication: CARDIAC FAILURE CONGESTIVE
     Route: 048
  6. MAINTATE [Concomitant]
     Indication: CARDIAC FAILURE CONGESTIVE
     Route: 048
  7. WARFARIN [Concomitant]
     Indication: ATRIAL FIBRILLATION
     Route: 048
  8. TAKEPRON [Concomitant]
     Indication: GASTROOESOPHAGEAL REFLUX DISEASE
     Route: 048
  9. MIGLITOL [Concomitant]
     Indication: DIABETES MELLITUS
     Dosage: 09JUN13-150MG
     Route: 048
     Dates: start: 20130512, end: 20130609
  10. AIMIX [Concomitant]
     Indication: HYPERTENSION
     Route: 048
     Dates: start: 20130512
  11. KETOPROFEN [Concomitant]
     Indication: SPINAL OSTEOARTHRITIS
     Dates: start: 20130512
  12. LIVALO [Concomitant]
     Indication: HYPERCHOLESTEROLAEMIA
     Route: 048
     Dates: start: 20130526, end: 20130625
  13. LIOVEL [Concomitant]
     Indication: DIABETES MELLITUS
     Route: 048
     Dates: start: 20130609
  14. FEBUXOSTAT [Concomitant]
     Indication: HYPERURICAEMIA
     Route: 048
     Dates: start: 20130609
  15. CRESTOR [Concomitant]
     Indication: HYPERCHOLESTEROLAEMIA
     Route: 048
     Dates: start: 20130624
  16. URITOS [Concomitant]
     Indication: HYPERTONIC BLADDER
     Route: 048
     Dates: start: 20130819

REACTIONS (2)
  - Cardiac failure [Unknown]
  - Lactic acidosis [Unknown]
